FAERS Safety Report 5674910-1 (Version None)
Quarter: 2008Q1

REPORT INFORMATION
  Report Type: 
  Country: None (occurrence: None)
  Receive Date: 20080320
  Receipt Date: 20080312
  Transmission Date: 20080703
  Serious: Yes (Life-Threatening, Hospitalization)
  Sender: FDA-Public Use
  Company Number: DE-GILEAD-2007-0014415

PATIENT
  Sex: Male
  Weight: 75 kg

DRUGS (10)
  1. TRUVADA [Suspect]
     Indication: HIV INFECTION
     Route: 048
     Dates: start: 20060519
  2. KALETRA [Suspect]
     Indication: HIV INFECTION
     Route: 048
     Dates: start: 20060519
  3. ENDRONAX [Concomitant]
     Indication: DEPRESSION
     Route: 048
  4. TESTOSTERONE [Concomitant]
     Indication: BLOOD TESTOSTERONE DECREASED
     Route: 030
  5. FUCIDINE CAP [Concomitant]
     Indication: FOLLICULITIS
     Route: 061
     Dates: start: 20060711
  6. PARACETAMOL [Concomitant]
     Indication: PYREXIA
     Route: 048
     Dates: start: 20060829
  7. DOXYCYCLIN [Concomitant]
     Indication: RHINITIS
     Dates: start: 20060908
  8. NOVAMINSULFON [Concomitant]
     Indication: HEADACHE
     Route: 048
     Dates: start: 20060908
  9. DOMINAL [Concomitant]
     Indication: DEPRESSION
     Dates: end: 20060723
  10. DOMINAL [Concomitant]
     Indication: PREMEDICATION
     Route: 048

REACTIONS (1)
  - RUPTURED CEREBRAL ANEURYSM [None]
